FAERS Safety Report 9741136 (Version 1)
Quarter: 2013Q4

REPORT INFORMATION
  Report Type: Spontaneous
  Country: GB (occurrence: GB)
  Receive Date: 20131209
  Receipt Date: 20131209
  Transmission Date: 20140711
  Serious: Yes (Other)
  Sender: FDA-Public Use
  Company Number: GB-TEVA-448744ISR

PATIENT
  Sex: Male

DRUGS (3)
  1. PREDNISOLONE [Suspect]
     Indication: PROSTATE CANCER
     Dosage: DOSAGE FORM: UNSPECIFIED
     Route: 065
  2. PREDNISOLONE [Suspect]
     Dosage: DOSAGE FORM: UNSPECIFIED, 10 MG IN THE MORNING ANF 5 MG IN THE EVENING
     Route: 065
  3. ZYTIGA [Suspect]
     Indication: PROSTATE CANCER
     Route: 048

REACTIONS (2)
  - Hyponatraemia [Unknown]
  - Cushingoid [Unknown]
